FAERS Safety Report 7909466-3 (Version None)
Quarter: 2011Q4

REPORT INFORMATION
  Report Type: 
  Country: None (occurrence: None)
  Receive Date: 20111111
  Receipt Date: 20111102
  Transmission Date: 20120403
  Serious: Yes (Hospitalization)
  Sender: FDA-Public Use
  Company Number: US-ASTRAZENECA-2011SE66284

PATIENT
  Age: 31420 Day
  Sex: Male

DRUGS (12)
  1. ATACAND [Suspect]
     Indication: HYPERTENSION
     Route: 048
     Dates: start: 20060509
  2. PROZAC [Concomitant]
  3. MULTI-VITAMINS [Concomitant]
  4. STUDY PROCEDURE [Suspect]
     Indication: HYPERTENSION
     Route: 065
  5. FISH OIL [Concomitant]
  6. CADUET [Suspect]
     Indication: HYPERTENSION
     Dosage: 5/40 MG DAILY
     Route: 048
     Dates: start: 20091001
  7. BISOPROLOL [Concomitant]
  8. IBUPROFEN [Concomitant]
  9. CADUET [Suspect]
     Indication: HYPERLIPIDAEMIA
     Dosage: 5/40 MG DAILY
     Route: 048
     Dates: start: 20091001
  10. METFORMIN HCL [Concomitant]
  11. ENALAPRIL MALEATE [Concomitant]
  12. LEVOTHYROXINE SODIUM [Concomitant]

REACTIONS (3)
  - DEHYDRATION [None]
  - URINARY TRACT INFECTION [None]
  - FATIGUE [None]
